FAERS Safety Report 15546930 (Version 1)
Quarter: 2018Q4

REPORT INFORMATION
  Report Type: Spontaneous
  Country: US (occurrence: US)
  Receive Date: 20181024
  Receipt Date: 20181024
  Transmission Date: 20190205
  Serious: Yes (Hospitalization, Other)
  Sender: FDA-Public Use
  Company Number: US-SA-2017SA211037

PATIENT
  Age: 70 Year
  Sex: Female

DRUGS (8)
  1. METOPROLOL SALT NOT SPECIFIED [Suspect]
     Active Substance: METOPROLOL
     Indication: MYOCARDIAL INFARCTION
     Dosage: 100 MG,QD
     Route: 048
     Dates: start: 201702
  2. SIMVASTATIN. [Suspect]
     Active Substance: SIMVASTATIN
     Indication: HYPERLIPIDAEMIA
     Dosage: 10 MG,QD
     Route: 048
     Dates: start: 201702
  3. LISINOPRIL. [Suspect]
     Active Substance: LISINOPRIL
     Indication: MYOCARDIAL INFARCTION
     Dosage: 10 MG,UNK
     Route: 048
     Dates: start: 201702
  4. ACETYLSALICYLIC ACID [Concomitant]
     Active Substance: ASPIRIN
     Dosage: 81 MG,UNK
     Route: 065
  5. CLOPIDOGREL BISULFATE. [Suspect]
     Active Substance: CLOPIDOGREL BISULFATE
     Indication: MYOCARDIAL INFARCTION
     Dosage: 75 MG,QD
     Route: 048
     Dates: start: 201702
  6. TUMS [CALCIUM CARBONATE;MAGNESIUM CARBONATE;MAGNESIUM TRISILICATE] [Concomitant]
  7. ISOSORBIDE MONONITRATE. [Suspect]
     Active Substance: ISOSORBIDE MONONITRATE
     Indication: MYOCARDIAL INFARCTION
     Dosage: 30 MG,UNK
     Route: 048
     Dates: start: 201702
  8. WELCHOL [Suspect]
     Active Substance: COLESEVELAM HYDROCHLORIDE
     Indication: HYPERLIPIDAEMIA
     Dosage: 3.75 G,UNK
     Route: 048
     Dates: start: 201701, end: 201710

REACTIONS (10)
  - High density lipoprotein decreased [Unknown]
  - Cholelithiasis [Unknown]
  - Faeces pale [Unknown]
  - Biliary tract disorder [Unknown]
  - Abdominal discomfort [Recovered/Resolved]
  - Blood triglycerides increased [Unknown]
  - Diarrhoea [Recovering/Resolving]
  - Constipation [Recovered/Resolved]
  - Myocardial infarction [Recovered/Resolved]
  - Pain [Not Recovered/Not Resolved]

NARRATIVE: CASE EVENT DATE: 2017
